FAERS Safety Report 9774912 (Version 1)
Quarter: 2013Q4

REPORT INFORMATION
  Report Type: Spontaneous
  Country: US (occurrence: US)
  Receive Date: 20131220
  Receipt Date: 20131220
  Transmission Date: 20140711
  Serious: No
  Sender: FDA-Public Use
  Company Number: US-GLAXOSMITHKLINE-A1013458A

PATIENT
  Age: 56 Year
  Sex: Male

DRUGS (4)
  1. AVODART [Suspect]
     Indication: BENIGN PROSTATIC HYPERPLASIA
     Dosage: .5MG PER DAY
     Route: 048
     Dates: start: 2012, end: 20130217
  2. NEXIUM [Concomitant]
  3. SYNTHROID [Concomitant]
  4. FLOMAX [Concomitant]

REACTIONS (8)
  - Semen volume decreased [Not Recovered/Not Resolved]
  - Anorgasmia [Unknown]
  - Fatigue [Unknown]
  - Weight increased [Unknown]
  - Muscle disorder [Unknown]
  - Exercise tolerance decreased [Unknown]
  - Pollakiuria [Unknown]
  - Urine flow decreased [Unknown]
